FAERS Safety Report 4984753-X (Version None)
Quarter: 2006Q2

REPORT INFORMATION
  Report Type: 
  Country: None (occurrence: None)
  Receive Date: 20060427
  Receipt Date: 20051019
  Transmission Date: 20061013
  Serious: Yes (Hospitalization)
  Sender: FDA-Public Use
  Company Number: US-MERCK-0510USA08305

PATIENT
  Age: 54 Year
  Sex: Male
  Weight: 109 kg

DRUGS (2)
  1. VIOXX [Suspect]
     Indication: ARTHRITIS
     Route: 048
     Dates: start: 20040106, end: 20040929
  2. VIOXX [Suspect]
     Indication: CARPAL TUNNEL SYNDROME
     Route: 048
     Dates: start: 20040106, end: 20040929

REACTIONS (18)
  - CARPAL TUNNEL DECOMPRESSION [None]
  - CATHETER SITE HAEMATOMA [None]
  - CORONARY ARTERY DISEASE [None]
  - CORONARY ARTERY STENOSIS [None]
  - DEPRESSION [None]
  - EMOTIONAL DISTRESS [None]
  - HAEMATOMA [None]
  - HYPERTENSION [None]
  - MALIGNANT MELANOMA [None]
  - MELANOCYTIC NAEVUS [None]
  - MYOCARDIAL INFARCTION [None]
  - NECK PAIN [None]
  - ORAL SOFT TISSUE DISORDER [None]
  - ROAD TRAFFIC ACCIDENT [None]
  - SLEEP APNOEA SYNDROME [None]
  - TRANSIENT ISCHAEMIC ATTACK [None]
  - VENTRICULAR FIBRILLATION [None]
  - WEIGHT INCREASED [None]
